FAERS Safety Report 18187913 (Version 2)
Quarter: 2020Q3

REPORT INFORMATION
  Report Type: Spontaneous
  Country: US (occurrence: US)
  Receive Date: 20200824
  Receipt Date: 20200904
  Transmission Date: 20201103
  Serious: No
  Sender: FDA-Public Use
  Company Number: US-JNJFOC-20200831992

PATIENT
  Age: 28 Year
  Sex: Female
  Weight: 102.15 kg

DRUGS (1)
  1. WOMENS ROGAINE UNSCENTED [Suspect]
     Active Substance: MINOXIDIL
     Indication: ALOPECIA
     Dosage: AS INSTRUCTED?PRODUCT WAS LAST ADMINISTERED ON 18?AUG?2020
     Route: 061
     Dates: start: 202005

REACTIONS (1)
  - Drug ineffective [Unknown]
